FAERS Safety Report 15084238 (Version 1)
Quarter: 2018Q2

REPORT INFORMATION
  Report Type: Spontaneous
  Country: SE (occurrence: SE)
  Receive Date: 20180628
  Receipt Date: 20180628
  Transmission Date: 20180711
  Serious: Yes (Hospitalization)
  Sender: FDA-Public Use
  Company Number: SE-TEVA-2018-SE-913107

PATIENT
  Age: 88 Year
  Sex: Female

DRUGS (9)
  1. CANDESARTAN. [Suspect]
     Active Substance: CANDESARTAN
     Route: 065
  2. OXYCODONE [Concomitant]
     Active Substance: OXYCODONE
  3. GLYTRIN 0,4 MG/DOS SUBLINGUALSPRAY [Concomitant]
     Route: 060
  4. ALLOPURINOL TAKEDA 100 MG TABLETT [Concomitant]
  5. SIMVASTATIN. [Suspect]
     Active Substance: SIMVASTATIN
     Route: 065
  6. WARAN [Concomitant]
     Active Substance: WARFARIN SODIUM
  7. METOLAZONE. [Suspect]
     Active Substance: METOLAZONE
     Route: 065
  8. LEVAXIN [Concomitant]
     Active Substance: LEVOTHYROXINE SODIUM
  9. ALVEDON 500 MG FILMDRAGERAD TABLETT [Concomitant]
     Route: 065

REACTIONS (1)
  - Renal impairment [Not Recovered/Not Resolved]

NARRATIVE: CASE EVENT DATE: 20180425
